FAERS Safety Report 8812036 (Version 1)
Quarter: 2012Q4

REPORT INFORMATION
  Report Type: Spontaneous
  Country: US (occurrence: None)
  Receive Date: 20120926
  Receipt Date: 20120926
  Transmission Date: 20130627
  Serious: Yes (Other)
  Sender: FDA-Public Use
  Company Number: None

PATIENT
  Age: 63 Year
  Sex: Female

DRUGS (1)
  1. EXJADE [Suspect]
     Indication: SICKLE CELL ANEMIA WITH CRISIS
     Dosage: 1500mg daily po
     Route: 048
     Dates: start: 20120309, end: 20120920

REACTIONS (3)
  - Dry eye [None]
  - Diarrhoea [None]
  - Vision blurred [None]
